FAERS Safety Report 8201523-X (Version None)
Quarter: 2012Q1

REPORT INFORMATION
  Report Type: 
  Country: None (occurrence: None)
  Receive Date: 20120312
  Receipt Date: 20120308
  Transmission Date: 20120608
  Serious: Yes (Life-Threatening, Hospitalization, Other)
  Sender: FDA-Public Use
  Company Number: FR-GLAXOSMITHKLINE-B0731730A

PATIENT
  Sex: Female
  Weight: 79 kg

DRUGS (9)
  1. PROMACTA [Suspect]
     Indication: IDIOPATHIC THROMBOCYTOPENIC PURPURA
     Dosage: 25MG PER DAY
     Route: 048
     Dates: start: 20110401
  2. INSULINE [Concomitant]
     Indication: DIABETES MELLITUS
  3. METFORMIN HCL [Concomitant]
     Dosage: 700MG THREE TIMES PER DAY
  4. CALCIUM/VITAMIN D [Concomitant]
  5. ACETAMINOPHEN [Concomitant]
  6. ATENOLOL [Concomitant]
     Dosage: 100MG PER DAY
  7. NEXIUM [Suspect]
     Indication: PRODUCT USED FOR UNKNOWN INDICATION
     Dosage: 20MG PER DAY
  8. TILCOTIL [Suspect]
     Indication: PRODUCT USED FOR UNKNOWN INDICATION
     Dosage: 20MG PER DAY
     Dates: start: 20110922
  9. IRBESARTAN [Concomitant]
     Dosage: 150MG PER DAY

REACTIONS (6)
  - PLATELET COUNT DECREASED [None]
  - ARTHRALGIA [None]
  - DRUG INTERACTION [None]
  - HEPATOCELLULAR INJURY [None]
  - GINGIVAL BLEEDING [None]
  - MYALGIA [None]
